FAERS Safety Report 4441084-4 (Version None)
Quarter: 2004Q3

REPORT INFORMATION
  Report Type: 
  Country: None (occurrence: None)
  Receive Date: 20040902
  Receipt Date: 20040902
  Transmission Date: 20050211
  Serious: No
  Sender: FDA-Public Use
  Company Number: None

PATIENT
  Sex: Male
  Weight: 79.8331 kg

DRUGS (2)
  1. RITALIN [Suspect]
     Indication: ATTENTION DEFICIT/HYPERACTIVITY DISORDER
     Dosage: 5-20 MG DAILY ORAL
     Route: 048
     Dates: start: 19950801, end: 20020320
  2. CONCERTA [Suspect]
     Indication: ATTENTION DEFICIT/HYPERACTIVITY DISORDER
     Dosage: 36MG DAILY ORAL
     Route: 048
     Dates: start: 20020320, end: 20040901

REACTIONS (2)
  - ABDOMINAL PAIN [None]
  - CHOLELITHIASIS [None]
